FAERS Safety Report 5706556-0 (Version None)
Quarter: 2008Q2

REPORT INFORMATION
  Report Type: 
  Country: None (occurrence: None)
  Receive Date: 20080415
  Receipt Date: 20080403
  Transmission Date: 20081010
  Serious: Yes (Death, Other)
  Sender: FDA-Public Use
  Company Number: US-ELI_LILLY_AND_COMPANY-US200803001359

PATIENT
  Age: 80 Year
  Sex: Female

DRUGS (1)
  1. GEMZAR [Suspect]
     Indication: BREAST CANCER METASTATIC
     Route: 042
     Dates: start: 20070801

REACTIONS (3)
  - BLOOD LACTATE DEHYDROGENASE [None]
  - DEATH [None]
  - HYDRONEPHROSIS [None]
